FAERS Safety Report 4422796-5 (Version None)
Quarter: 2004Q3

REPORT INFORMATION
  Report Type: 
  Country: None (occurrence: None)
  Receive Date: 20040719
  Receipt Date: 20040322
  Transmission Date: 20050211
  Serious: Yes (Hospitalization)
  Sender: FDA-Public Use
  Company Number: M04-INT-060

PATIENT
  Age: 76 Year
  Sex: Male

DRUGS (4)
  1. INTEGRILIN [Suspect]
     Indication: ARTERIAL REPAIR
     Dosage: SEE IMAGE IV DRIP
     Route: 041
  2. HEPARIN [Concomitant]
  3. ASPIRIN [Concomitant]
  4. CLOPIDOGREL [Concomitant]

REACTIONS (1)
  - APPLICATION SITE BLEEDING [None]
